FAERS Safety Report 4716857-0 (Version None)
Quarter: 2005Q3

REPORT INFORMATION
  Report Type: 
  Country: None (occurrence: None)
  Receive Date: 20050714
  Receipt Date: 20050708
  Transmission Date: 20060218
  Serious: Yes (Death, Other)
  Sender: FDA-Public Use
  Company Number: 2005US000892

PATIENT
  Age: 62 Year
  Sex: Female

DRUGS (4)
  1. PROGRAF [Suspect]
     Indication: PROPHYLAXIS AGAINST TRANSPLANT REJECTION
  2. SIROLIMUS (SIROLIMUS) [Suspect]
     Indication: PROPHYLAXIS AGAINST TRANSPLANT REJECTION
  3. PREDNISONE [Suspect]
     Indication: PROPHYLAXIS AGAINST TRANSPLANT REJECTION
     Dosage: 10.00 MG, UID/QD
  4. OMEPRAZOLE [Concomitant]

REACTIONS (4)
  - COMPLICATIONS OF TRANSPLANTED LIVER [None]
  - GASTRIC ULCER [None]
  - HAEMORRHAGE [None]
  - LIVER TRANSPLANT REJECTION [None]
